FAERS Safety Report 9132457 (Version 1)
Quarter: 2013Q1

REPORT INFORMATION
  Report Type: Spontaneous
  Country: DK (occurrence: DK)
  Receive Date: 20130301
  Receipt Date: 20130301
  Transmission Date: 20140127
  Serious: No
  Sender: FDA-Public Use
  Company Number: DK-GLAXOSMITHKLINE-A1014080A

PATIENT
  Age: 32 Year
  Sex: Female

DRUGS (4)
  1. SORIATANE [Suspect]
     Indication: ICHTHYOSIS
     Dosage: 25MG SEE DOSAGE TEXT
     Route: 048
     Dates: start: 1994, end: 20101223
  2. ISOTRETINOIN [Suspect]
     Indication: ICHTHYOSIS
     Route: 048
     Dates: start: 201012, end: 201212
  3. RETINOIDS [Suspect]
     Indication: ICHTHYOSIS
     Route: 061
  4. ORAL CONTRACEPTIVES [Concomitant]

REACTIONS (1)
  - Maternal exposure before pregnancy [Unknown]
